FAERS Safety Report 9610602 (Version 3)
Quarter: 2013Q4

REPORT INFORMATION
  Report Type: Report from Study
  Country: MX (occurrence: MX)
  Receive Date: 20131009
  Receipt Date: 20131018
  Transmission Date: 20140711
  Serious: Yes (Hospitalization, Disabling)
  Sender: FDA-Public Use
  Company Number: MX-ROCHE-1179073

PATIENT
  Age: 57 Year
  Sex: Female
  Weight: 74 kg

DRUGS (6)
  1. CAPECITABINE [Suspect]
     Indication: BREAST CANCER
     Route: 048
     Dates: start: 201210, end: 20121224
  2. CAPECITABINE [Suspect]
     Indication: METASTASES TO BONE
     Route: 048
     Dates: end: 2013
  3. GLIBENCLAMIDE [Concomitant]
     Indication: DIABETES MELLITUS
     Route: 048
  4. METFORMIN [Concomitant]
     Indication: DIABETES MELLITUS
     Route: 048
  5. ARTICHOKE [Concomitant]
     Route: 065
  6. AROMASIN [Concomitant]
     Indication: BREAST CANCER METASTATIC
     Route: 048
     Dates: start: 201212, end: 201309

REACTIONS (6)
  - Disability [Not Recovered/Not Resolved]
  - Fracture [Not Recovered/Not Resolved]
  - Palmar-plantar erythrodysaesthesia syndrome [Recovered/Resolved]
  - Toothache [Not Recovered/Not Resolved]
  - Disease progression [Not Recovered/Not Resolved]
  - Drug ineffective [Unknown]
